FAERS Safety Report 14218082 (Version 1)
Quarter: 2017Q4

REPORT INFORMATION
  Report Type: Spontaneous
  Country: US (occurrence: US)
  Receive Date: 20171123
  Receipt Date: 20171123
  Transmission Date: 20180321
  Serious: No
  Sender: FDA-Public Use
  Company Number: US-TRIS PHARMA, INC-2017TRISPO00436

PATIENT

DRUGS (2)
  1. DEXTROMETHORPHAN POLISTIREX [Suspect]
     Active Substance: DEXTROMETHORPHAN HYDROBROMIDE
     Indication: COUGH
     Dosage: AS DIRECTED ON THE BOTTLE, PRN (AS NEEDED IN THE MORNING)?
     Route: 048
     Dates: start: 201710
  2. ROBITUSSIN NIGHT TIME [Concomitant]
     Indication: COUGH
     Dosage: AS DIRECTED ON LABEL, USE THE PROVIDED PLASTIC CUP TO TAKE BY MOUTH AS NEEDED AT NIGHT
     Route: 048

REACTIONS (1)
  - Drug ineffective [Not Recovered/Not Resolved]
